FAERS Safety Report 7583063-4 (Version None)
Quarter: 2011Q2

REPORT INFORMATION
  Report Type: 
  Country: None (occurrence: None)
  Receive Date: 20110627
  Receipt Date: 20110627
  Transmission Date: 20111010
  Serious: Yes (Life-Threatening, Hospitalization, Disabling, Other)
  Sender: FDA-Public Use
  Company Number: None

PATIENT
  Sex: Female
  Weight: 49.8957 kg

DRUGS (1)
  1. PREMARIN [Suspect]
     Indication: HORMONE REPLACEMENT THERAPY
     Dosage: 1.25  1X DAY PO
     Route: 048
     Dates: start: 19850301, end: 20110625

REACTIONS (3)
  - MYOCARDIAL INFARCTION [None]
  - STRESS CARDIOMYOPATHY [None]
  - CARDIAC DISORDER [None]
